FAERS Safety Report 18632348 (Version 1)
Quarter: 2020Q4

REPORT INFORMATION
  Report Type: Spontaneous
  Country: US (occurrence: US)
  Receive Date: 20201217
  Receipt Date: 20201217
  Transmission Date: 20210114
  Serious: Yes (Other)
  Sender: FDA-Public Use
  Company Number: US-ENDO PHARMACEUTICALS INC-2020-002065

PATIENT
  Age: 67 Year
  Sex: Male
  Weight: 74.3 kg

DRUGS (2)
  1. XIAFLEX [Suspect]
     Active Substance: COLLAGENASE CLOSTRIDIUM HISTOLYTICUM
     Dosage: UNK UNKNOWN, UNKNOWN (CYCLE 1, INJECTIOIN 1)
     Route: 026
     Dates: start: 20200204
  2. XIAFLEX [Suspect]
     Active Substance: COLLAGENASE CLOSTRIDIUM HISTOLYTICUM
     Indication: PEYRONIE^S DISEASE
     Dosage: UNK UNKNOWN, UNKNOWN (CYCLE 1, INJECTION 2)
     Route: 026
     Dates: start: 20200206

REACTIONS (4)
  - Penile pain [Not Recovered/Not Resolved]
  - Penile swelling [Not Recovered/Not Resolved]
  - Contusion [Not Recovered/Not Resolved]
  - Nodule [Recovering/Resolving]

NARRATIVE: CASE EVENT DATE: 20200225
